FAERS Safety Report 16950972 (Version 1)
Quarter: 2019Q4

REPORT INFORMATION
  Report Type: Spontaneous
  Country: CA (occurrence: CA)
  Receive Date: 20191023
  Receipt Date: 20191023
  Transmission Date: 20200122
  Serious: Yes (Hospitalization)
  Sender: FDA-Public Use
  Company Number: CA-PFIZER INC-2019453544

PATIENT
  Age: 45 Year
  Sex: Male

DRUGS (3)
  1. PHENYTOIN. [Suspect]
     Active Substance: PHENYTOIN
     Indication: SEIZURE
     Dosage: 450 MG, 1X/DAY
     Route: 048
  2. DIAZEPAM. [Concomitant]
     Active Substance: DIAZEPAM
     Dosage: UNK
  3. PHENYTOIN. [Suspect]
     Active Substance: PHENYTOIN
     Dosage: 400 MG, 1X/DAY
     Route: 048

REACTIONS (2)
  - Suicidal ideation [Recovering/Resolving]
  - Homicidal ideation [Recovering/Resolving]
